FAERS Safety Report 7054760-4 (Version None)
Quarter: 2010Q4

REPORT INFORMATION
  Report Type: 
  Country: None (occurrence: None)
  Receive Date: 20101018
  Receipt Date: 20101006
  Transmission Date: 20110411
  Serious: Yes (Hospitalization)
  Sender: FDA-Public Use
  Company Number: UTC-001520

PATIENT
  Age: 75 Year
  Sex: Female
  Weight: 97.5 kg

DRUGS (5)
  1. TYVASO [Suspect]
     Indication: PULMONARY HYPERTENSION
     Dosage: 96 MCG (24 MCG, 4 IN 1 D),INHALATION
     Route: 055
     Dates: start: 20100427
  2. ADCIRCA [Suspect]
     Dosage: 40 MG (40 MG,1 IN 1 D),ORAL
     Route: 048
  3. PLAVIX [Concomitant]
  4. ASPIRIN [Concomitant]
  5. DIGOXIN [Concomitant]

REACTIONS (3)
  - ANAEMIA [None]
  - REFUSAL OF TREATMENT BY PATIENT [None]
  - UPPER GASTROINTESTINAL HAEMORRHAGE [None]
